FAERS Safety Report 11115108 (Version 1)
Quarter: 2015Q2

REPORT INFORMATION
  Report Type: Spontaneous
  Country: US (occurrence: None)
  Receive Date: 20150507
  Receipt Date: 20150507
  Transmission Date: 20150821
  Serious: Yes (Hospitalization, Other)
  Sender: FDA-Public Use
  Company Number: 2015AP005135

PATIENT
  Age: 35 Year
  Sex: Female

DRUGS (10)
  1. SERTRALINE HYDROCHLORIDE  (SERTRALINE)  TABLET [Suspect]
     Active Substance: SERTRALINE HYDROCHLORIDE
     Indication: PRODUCT USED FOR UNKNOWN INDICATION
  2. GARCINIA CAMBOGIA [Suspect]
     Active Substance: HYDROXYCITRIC ACID
     Indication: WEIGHT DECREASED
     Dosage: 1000 MG; TWO CAPSULES THREE TIMES A DAY FOR THE PREVIOUS 2-3 MO
  3. BACLOFEN. [Concomitant]
     Active Substance: BACLOFEN
  4. DIPHENHYDRAMINE [Concomitant]
     Active Substance: DIPHENHYDRAMINE
  5. ESCITALOPRAM OXALATE (ESCITALOPRAM) TABLET [Suspect]
     Active Substance: ESCITALOPRAM OXALATE
     Indication: PRODUCT USED FOR UNKNOWN INDICATION
  6. GABAPENTIN. [Concomitant]
     Active Substance: GABAPENTIN
  7. OMEPRAZOLE. [Concomitant]
     Active Substance: OMEPRAZOLE
  8. SOLIFENACIN [Concomitant]
     Active Substance: SOLIFENACIN
  9. OXYCODONE [Concomitant]
     Active Substance: OXYCODONE
  10. SILODOSIN [Concomitant]
     Active Substance: SILODOSIN

REACTIONS (1)
  - Serotonin syndrome [None]
